FAERS Safety Report 5083524-6 (Version None)
Quarter: 2006Q3

REPORT INFORMATION
  Report Type: 
  Country: None (occurrence: None)
  Receive Date: 20060818
  Receipt Date: 20060810
  Transmission Date: 20061208
  Serious: Yes (Other)
  Sender: FDA-Public Use
  Company Number: 2006UW16238

PATIENT
  Age: 7796 Day
  Sex: Female

DRUGS (11)
  1. PULMICORT [Suspect]
     Indication: ASTHMA
     Route: 055
     Dates: start: 19940705, end: 19990601
  2. PULMICORT [Suspect]
     Dosage: FOLLOW UP PHASE: 200 MCG 2 PUFFS/DAY (4-7 DAYS/WEEK)
     Route: 055
  3. ALBUTEROL [Concomitant]
  4. NASAL STEROIDS [Concomitant]
     Route: 045
  5. ACYCLOVIR [Concomitant]
  6. ACCUTANE [Concomitant]
  7. AMOXICILLIN [Concomitant]
  8. VICODIN [Concomitant]
  9. CODEINE [Concomitant]
  10. ANTIBIOTIC EYE OINTMENT [Concomitant]
  11. BUDESONIDE IN NASAL PREPARATION [Concomitant]
     Route: 045
     Dates: start: 20000601

REACTIONS (1)
  - CATARACT SUBCAPSULAR [None]
